FAERS Safety Report 14109985 (Version 1)
Quarter: 2017Q4

REPORT INFORMATION
  Report Type: Spontaneous
  Country: US (occurrence: US)
  Receive Date: 20171020
  Receipt Date: 20171020
  Transmission Date: 20180321
  Serious: No
  Sender: FDA-Public Use
  Company Number: US-TEVA-701431USA

PATIENT
  Sex: Female
  Weight: 81.72 kg

DRUGS (2)
  1. SPRINTEC [Suspect]
     Active Substance: ETHINYL ESTRADIOL\NORGESTIMATE
     Indication: ACNE
     Dosage: 0.250 MG/0.035 MG
     Route: 065
     Dates: start: 201607
  2. SPRINTEC [Suspect]
     Active Substance: ETHINYL ESTRADIOL\NORGESTIMATE
     Indication: MENSTRUATION IRREGULAR

REACTIONS (2)
  - Abdominal pain [Unknown]
  - Ovarian cyst [Unknown]
